FAERS Safety Report 24576530 (Version 1)
Quarter: 2024Q4

REPORT INFORMATION
  Report Type: Spontaneous
  Country: US (occurrence: None)
  Receive Date: 20241103
  Receipt Date: 20241103
  Transmission Date: 20250115
  Serious: Yes (Other)
  Sender: Public
  Company Number: None

PATIENT
  Age: 42 Year
  Sex: Male

DRUGS (2)
  1. SKYRIZI [Suspect]
     Active Substance: RISANKIZUMAB-RZAA
     Indication: Colitis ulcerative
  2. Mesalamine pills and enemas [Concomitant]

REACTIONS (4)
  - Sluggishness [None]
  - Mood altered [None]
  - Feeling abnormal [None]
  - Psychotic disorder [None]

NARRATIVE: CASE EVENT DATE: 20241030
